FAERS Safety Report 4404566-7 (Version None)
Quarter: 2004Q3

REPORT INFORMATION
  Report Type: 
  Country: None (occurrence: None)
  Receive Date: 20040721
  Receipt Date: 20040721
  Transmission Date: 20050211
  Serious: Yes (Hospitalization)
  Sender: FDA-Public Use
  Company Number: None

PATIENT
  Sex: Male

DRUGS (7)
  1. IMMUNE GLOBULIN (HUMAN) [Suspect]
     Indication: GAMMOPATHY
  2. ASPIRIN [Concomitant]
  3. AMIODARONE HCL [Concomitant]
  4. ATORVASTATIN CALCIUM [Concomitant]
  5. CITALOPRAM [Concomitant]
  6. DITROPAN [Concomitant]
  7. IBUPROFEN [Concomitant]

REACTIONS (3)
  - FLUID OVERLOAD [None]
  - PHARMACEUTICAL PRODUCT COMPLAINT [None]
  - RENAL FAILURE ACUTE [None]
